FAERS Safety Report 7083632-4 (Version None)
Quarter: 2010Q4

REPORT INFORMATION
  Report Type: 
  Country: None (occurrence: None)
  Receive Date: 20101104
  Receipt Date: 20101026
  Transmission Date: 20110411
  Serious: Yes (Hospitalization)
  Sender: FDA-Public Use
  Company Number: 2008BI006579

PATIENT
  Age: 33 Year
  Sex: Female

DRUGS (2)
  1. AVONEX [Suspect]
     Indication: MULTIPLE SCLEROSIS
     Route: 030
     Dates: start: 20010419, end: 20020621
  2. AVONEX [Suspect]
     Route: 030
     Dates: start: 20040611

REACTIONS (6)
  - ASTHMA [None]
  - BLOOD CALCIUM DECREASED [None]
  - BLOOD MAGNESIUM DECREASED [None]
  - NASOPHARYNGITIS [None]
  - THYROID CANCER [None]
  - VITAMIN D DECREASED [None]
